FAERS Safety Report 9413218 (Version 1)
Quarter: 2013Q2

REPORT INFORMATION
  Report Type: Spontaneous
  Country: US (occurrence: None)
  Receive Date: 20130611
  Receipt Date: 20130611
  Transmission Date: 20140414
  Serious: Yes (Other)
  Sender: FDA-Public Use
  Company Number: ACO_21775_2011

PATIENT
  Age: 47 Year
  Sex: Female

DRUGS (11)
  1. AMPYRA (DALFAMPRIDINE) TABLET, 10MG [Suspect]
     Route: 048
     Dates: start: 2011, end: 2011
  2. CYMBALTA (DULOXETINE HYDROCHLORIDE) [Concomitant]
  3. XANAX (ALPRAZOLAM ) [Concomitant]
  4. LEVOCETRIZINE (LEVOCETRIZINE) [Concomitant]
  5. BACLOFEN (BACLOFEN) [Concomitant]
  6. FAMOTIDINE (FAMOTIDINE) [Concomitant]
  7. AMPHETAMINE SALTS (AMFETAMINE SULFATE) [Concomitant]
  8. ASPIRIN (ACETYLSALICYLICA ACID) [Concomitant]
  9. SEROQUEL (QUETIAPINE FUMARATE) [Concomitant]
  10. TRAZODONE (TRAZODONE) [Concomitant]
  11. ROXICODONE (OXYCODONE HYDROCHLORIDE) [Concomitant]

REACTIONS (4)
  - Concussion [None]
  - Fall [None]
  - Dizziness [None]
  - Balance disorder [None]
